FAERS Safety Report 9063763 (Version 1)
Quarter: 2013Q1

REPORT INFORMATION
  Report Type: Report from Study
  Country: US (occurrence: US)
  Receive Date: 20130213
  Receipt Date: 20130213
  Transmission Date: 20140127
  Serious: Yes (Other)
  Sender: FDA-Public Use
  Company Number: JP-ASTELLAS-2012US012462

PATIENT
  Age: 79 None
  Sex: Female
  Weight: 70 kg

DRUGS (11)
  1. ERLOTINIB TABLET [Suspect]
     Indication: LUNG NEOPLASM MALIGNANT
     Dosage: 150 MG, UID/QD
     Route: 048
     Dates: start: 20120426, end: 20121206
  2. HYDROCHLOROTHIAZIDE [Concomitant]
     Indication: PRODUCT USED FOR UNKNOWN INDICATION
     Dosage: 25 MG, UID/QD
     Route: 065
  3. LEVOTHYROXINE SODIUM [Concomitant]
     Indication: PRODUCT USED FOR UNKNOWN INDICATION
     Dosage: 112 UG, UID/QD
     Route: 065
  4. SPIRIVA HANDIHALER [Concomitant]
     Indication: PRODUCT USED FOR UNKNOWN INDICATION
     Dosage: 18 UG, UID/QD
     Route: 055
  5. CALCIUM 600 + D [Concomitant]
     Indication: PRODUCT USED FOR UNKNOWN INDICATION
     Dosage: 1 DF, UID/QD
     Route: 065
  6. OCUVITE LUTEIN [Concomitant]
     Indication: PRODUCT USED FOR UNKNOWN INDICATION
     Dosage: 1 DF, UID/QD
     Route: 065
  7. VITAMIN B-12 [Concomitant]
     Indication: PRODUCT USED FOR UNKNOWN INDICATION
     Dosage: 1000 UG, UID/QD
     Route: 065
  8. VITAMIN D3 [Concomitant]
     Indication: PRODUCT USED FOR UNKNOWN INDICATION
     Dosage: 1000 U, UID/QD
     Route: 065
  9. LOVENOX [Concomitant]
     Indication: PULMONARY EMBOLISM
     Dosage: 1 DF, BID
     Route: 065
  10. PROCHLORPERAZINE MALEATE [Concomitant]
     Indication: NAUSEA
     Dosage: 10 MG, PRN Q6H
     Route: 065
  11. WARFARIN SODIUM [Concomitant]
     Indication: PULMONARY EMBOLISM
     Dosage: 5 MG, UID/QD
     Route: 065

REACTIONS (12)
  - Vocal cord paralysis [Unknown]
  - Liver injury [Recovering/Resolving]
  - Aortic calcification [Unknown]
  - Spinal osteoarthritis [Unknown]
  - Blood urea increased [Unknown]
  - Colitis [Unknown]
  - Diarrhoea [Unknown]
  - Dehydration [Recovering/Resolving]
  - Dermatitis [Not Recovered/Not Resolved]
  - Pruritus [Unknown]
  - Fatigue [Not Recovered/Not Resolved]
  - Cough [Unknown]
